FAERS Safety Report 7259215 (Version 2)
Quarter: 2014Q1

REPORT INFORMATION
  Report Type: Spontaneous
  Country: US (occurrence: None)
  Receive Date: 20100119
  Receipt Date: 20140127
  Transmission Date: 20141002
  Serious: Yes (Other)
  Sender: FDA-Public Use
  Company Number: 2010S1000057

PATIENT
  Age: 65 Year
  Sex: Male

DRUGS (3)
  1. FLEET PHOSPHO-SODA ORAL SALINE LAXATIVE, GINGER-LEMON FLAVOR [Suspect]
     Indication: COLONOSCOPY
     Dosage: ; PO
     Route: 048
     Dates: start: 20000710
  2. FLEET STIMULANT [Suspect]
     Indication: COLONOSCOPY
     Dosage: 4 ENTERIC COATED TABLETS,0N 7/10/2000.
  3. FLEET BISACODYL [Suspect]
     Indication: COLONOSCOPY
     Dosage: RECTAL, ON 7/11/2000.

REACTIONS (4)
  - Renal disorder [None]
  - Renal failure chronic [None]
  - Hyperparathyroidism secondary [None]
  - Nephropathy [None]
